FAERS Safety Report 12219571 (Version 1)
Quarter: 2016Q1

REPORT INFORMATION
  Report Type: Spontaneous
  Country: US (occurrence: US)
  Receive Date: 20160329
  Receipt Date: 20160329
  Transmission Date: 20160526
  Serious: Yes (Other)
  Sender: FDA-Public Use
  Company Number: PHEH2016US007254

PATIENT
  Age: 28 Year
  Sex: Female
  Weight: 92.99 kg

DRUGS (6)
  1. APTON [Suspect]
     Active Substance: PANTOPRAZOLE SODIUM
     Indication: SEIZURE
     Route: 065
  2. PLAQUENIL [Concomitant]
     Active Substance: HYDROXYCHLOROQUINE SULFATE
     Indication: SJOGREN^S SYNDROME
     Dosage: 2 DF, BID
     Route: 065
  3. LYRICA [Concomitant]
     Active Substance: PREGABALIN
     Indication: FIBROMYALGIA
     Dosage: 1200 MG, QD
     Route: 065
  4. LYRICA [Concomitant]
     Active Substance: PREGABALIN
     Dosage: 300 MG, QD
     Route: 065
  5. THYROXINE [Concomitant]
     Active Substance: LEVOTHYROXINE
     Indication: THYROID DISORDER
     Dosage: UNK
     Route: 065
  6. TEGRETOL [Suspect]
     Active Substance: CARBAMAZEPINE
     Indication: SEIZURE
     Dosage: 500 MG, BID
     Route: 065
     Dates: start: 1984

REACTIONS (1)
  - Seizure [Unknown]

NARRATIVE: CASE EVENT DATE: 19850706
